FAERS Safety Report 18410671 (Version 1)
Quarter: 2020Q4

REPORT INFORMATION
  Report Type: Spontaneous
  Country: ES (occurrence: ES)
  Receive Date: 20201021
  Receipt Date: 20201021
  Transmission Date: 20210114
  Serious: Yes (Hospitalization)
  Sender: FDA-Public Use
  Company Number: ES-TEVA-2020-ES-1839865

PATIENT
  Age: 76 Year
  Sex: Male

DRUGS (4)
  1. AMOXICILINA CLAVULANICO [Suspect]
     Active Substance: AMOXICILLIN\CLAVULANATE POTASSIUM
     Indication: DIABETIC FOOT INFECTION
     Dosage: 3 DOSAGE FORMS DAILY; 1-1-1
     Route: 048
     Dates: start: 20200216, end: 20200428
  2. CIPROFLOXACINO (2049A) [Suspect]
     Active Substance: CIPROFLOXACIN
     Indication: DIABETIC FOOT INFECTION
     Dosage: 500 MILLIGRAM DAILY;
     Route: 048
     Dates: start: 20200216, end: 20200428
  3. METAMIZOL [Suspect]
     Active Substance: METAMIZOLE SODIUM
     Indication: PAIN
     Dosage: 1725 MILLIGRAM DAILY; (1-1-1)
     Route: 048
     Dates: start: 20200216, end: 20200328
  4. IBUPROFENO (1769A) [Suspect]
     Active Substance: IBUPROFEN
     Indication: PAIN
     Dosage: 1800 MILLIGRAM DAILY;  (1-1-1)
     Route: 048
     Dates: start: 20200328, end: 20200428

REACTIONS (1)
  - Acute kidney injury [Recovered/Resolved]

NARRATIVE: CASE EVENT DATE: 20200428
